FAERS Safety Report 20194604 (Version 1)
Quarter: 2021Q4

REPORT INFORMATION
  Report Type: Spontaneous
  Country: US (occurrence: US)
  Receive Date: 20211216
  Receipt Date: 20211216
  Transmission Date: 20220303
  Serious: Yes (Other)
  Sender: FDA-Public Use
  Company Number: US-PFIZER INC-202101753118

PATIENT
  Age: 88 Year
  Sex: Male

DRUGS (4)
  1. VYNDAMAX [Suspect]
     Active Substance: TAFAMIDIS
     Indication: Amyloidosis senile
     Dosage: 61 MG
  2. LORAZEPAM [Concomitant]
     Active Substance: LORAZEPAM
     Indication: Sleep disorder
     Dosage: UNK, 1X/DAY (BEDTIME)
  3. TYLENOL [Concomitant]
     Active Substance: ACETAMINOPHEN
     Dosage: 50 MG
  4. LASIX [Concomitant]
     Active Substance: FUROSEMIDE
     Dosage: UNK

REACTIONS (10)
  - Atrial fibrillation [Unknown]
  - Polyneuropathy [Unknown]
  - Bifascicular block [Unknown]
  - Essential hypertension [Unknown]
  - Coronary artery disease [Unknown]
  - Fatigue [Unknown]
  - Hyperlipidaemia [Unknown]
  - Coagulopathy [Unknown]
  - Depression [Unknown]
  - Oedema peripheral [Unknown]
